FAERS Safety Report 10707026 (Version 1)
Quarter: 2015Q1

REPORT INFORMATION
  Report Type: Spontaneous
  Country: US (occurrence: US)
  Receive Date: 20150113
  Receipt Date: 20150113
  Transmission Date: 20150721
  Serious: No
  Sender: FDA-Public Use
  Company Number: US-TEVA-533769USA

PATIENT
  Age: 15 Year

DRUGS (1)
  1. QVAR [Suspect]
     Active Substance: BECLOMETHASONE DIPROPIONATE
     Route: 065

REACTIONS (5)
  - Rash [Unknown]
  - Oral mucosal eruption [Unknown]
  - Feeling jittery [Unknown]
  - Emotional disorder [Unknown]
  - Mouth swelling [Unknown]
